FAERS Safety Report 11913675 (Version 6)
Quarter: 2017Q1

REPORT INFORMATION
  Report Type: Spontaneous
  Country: US (occurrence: US)
  Receive Date: 20160113
  Receipt Date: 20170109
  Transmission Date: 20170428
  Serious: Yes (Other)
  Sender: FDA-Public Use
  Company Number: US-PFIZER INC-2015453860

PATIENT
  Age: 69 Year
  Sex: Female
  Weight: 69 kg

DRUGS (3)
  1. XGEVA [Concomitant]
     Active Substance: DENOSUMAB
     Dosage: UNK
  2. LETROZOLE. [Suspect]
     Active Substance: LETROZOLE
     Dosage: UNK
  3. IBRANCE [Suspect]
     Active Substance: PALBOCICLIB
     Indication: BREAST CANCER
     Dosage: 125 MG, DAILY(TAKE 1 CAPSULE BY MOUTH DAILY)
     Route: 048
     Dates: start: 201508

REACTIONS (8)
  - Neuropathy peripheral [Unknown]
  - Constipation [Recovered/Resolved]
  - Full blood count decreased [Unknown]
  - Nausea [Unknown]
  - Decreased appetite [Unknown]
  - Diarrhoea [Unknown]
  - Nasopharyngitis [Unknown]
  - Weight increased [Unknown]

NARRATIVE: CASE EVENT DATE: 2016
